FAERS Safety Report 14343058 (Version 3)
Quarter: 2018Q1

REPORT INFORMATION
  Report Type: Report from Study
  Country: IE (occurrence: IE)
  Receive Date: 20180102
  Receipt Date: 20180130
  Transmission Date: 20180509
  Serious: Yes (Death, Life-Threatening, Other)
  Sender: FDA-Public Use
  Company Number: IE-AMGEN-IRLCT2017192508

PATIENT
  Age: 65 Year
  Sex: Male

DRUGS (4)
  1. CARBOPLATIN. [Suspect]
     Active Substance: CARBOPLATIN
     Indication: NON-SMALL CELL LUNG CANCER STAGE IV
     Dosage: 591 MG, Q3WK
     Route: 042
     Dates: start: 20171214, end: 20171214
  2. DENOSUMAB [Suspect]
     Active Substance: DENOSUMAB
     Indication: NON-SMALL CELL LUNG CANCER STAGE IV
     Dosage: 120 MG, Q3WK
     Route: 058
     Dates: start: 20171214, end: 20171221
  3. CALCIUM D3 F [Concomitant]
     Indication: PROPHYLAXIS
     Dosage: 1 DF, TID
     Route: 048
     Dates: start: 20171221, end: 20171227
  4. GEMCITABINE [Suspect]
     Active Substance: GEMCITABINE\GEMCITABINE HYDROCHLORIDE
     Indication: NON-SMALL CELL LUNG CANCER STAGE IV
     Dosage: 1480 MG, (2 IN 3 WEEKS)
     Route: 042
     Dates: start: 20171214, end: 20171221

REACTIONS (3)
  - Infection [Fatal]
  - Respiratory failure [Fatal]
  - Haemorrhage [Fatal]

NARRATIVE: CASE EVENT DATE: 20171227
